FAERS Safety Report 5022383-4 (Version None)
Quarter: 2006Q2

REPORT INFORMATION
  Report Type: 
  Country: None (occurrence: None)
  Receive Date: 20060605
  Receipt Date: 20060530
  Transmission Date: 20061013
  Serious: Yes (Hospitalization)
  Sender: FDA-Public Use
  Company Number: US017636

PATIENT
  Age: 84 Year
  Sex: Female

DRUGS (7)
  1. TRISENOX [Suspect]
     Indication: ACUTE PROMYELOCYTIC LEUKAEMIA
     Dosage: 4.1 MG QD INTRAVENOUS DRIP
     Route: 041
     Dates: start: 20060228, end: 20060320
  2. FUROSEMIDE [Suspect]
     Dosage: 40 MG QD ORAL
     Route: 048
     Dates: start: 20060221
  3. MEXILETINE HYDROCHLORIDE [Concomitant]
  4. NIFEDIPINE [Concomitant]
  5. L-ASPARTATE POTASSIUM [Concomitant]
  6. NIZATIDINE [Concomitant]
  7. INSULIN HUMAN [Concomitant]

REACTIONS (4)
  - C-REACTIVE PROTEIN INCREASED [None]
  - HYPOKALAEMIA [None]
  - PLATELET COUNT DECREASED [None]
  - WHITE BLOOD CELL COUNT DECREASED [None]
